APPROVED DRUG PRODUCT: CLOTRIMAZOLE
Active Ingredient: CLOTRIMAZOLE
Strength: 1%
Dosage Form/Route: CREAM;TOPICAL
Application: A090219 | Product #001 | TE Code: AB
Applicant: GLENMARK PHARMACEUTICALS INC USA
Approved: Aug 3, 2010 | RLD: No | RS: No | Type: RX